APPROVED DRUG PRODUCT: ZANTAC
Active Ingredient: RANITIDINE HYDROCHLORIDE
Strength: EQ 15MG BASE/ML
Dosage Form/Route: SYRUP;ORAL
Application: N019675 | Product #001
Applicant: GLAXO GROUP LTD ENGLAND DBA GLAXOSMITHKLINE
Approved: Dec 30, 1988 | RLD: Yes | RS: No | Type: DISCN